FAERS Safety Report 14554856 (Version 1)
Quarter: 2018Q1

REPORT INFORMATION
  Report Type: Spontaneous
  Country: FR (occurrence: FR)
  Receive Date: 20180220
  Receipt Date: 20180220
  Transmission Date: 20180509
  Serious: Yes (Other)
  Sender: FDA-Public Use
  Company Number: FR-ELI_LILLY_AND_COMPANY-FR201802004319

PATIENT
  Age: 45 Year
  Sex: Female
  Weight: 62 kg

DRUGS (3)
  1. LAMALINE                           /00764901/ [Suspect]
     Active Substance: ACETAMINOPHEN\BELLADONNA LEAF\CAFFEINE\MORPHINE
     Indication: PAIN
     Dosage: UNK UNK, UNKNOWN
     Route: 048
     Dates: start: 201604, end: 201706
  2. VOGALENE [Suspect]
     Active Substance: METOPIMAZINE
     Indication: GASTROINTESTINAL DISORDER
     Dosage: UNK UNK, UNKNOWN
     Route: 048
     Dates: start: 201604, end: 201706
  3. FLUOXETINE [Suspect]
     Active Substance: FLUOXETINE HYDROCHLORIDE
     Indication: MENTAL DISORDER
     Dosage: UNK UNK, UNKNOWN
     Route: 048
     Dates: start: 201612, end: 201706

REACTIONS (1)
  - Hepatocellular injury [Recovered/Resolved]

NARRATIVE: CASE EVENT DATE: 201702
